FAERS Safety Report 7272088-4 (Version None)
Quarter: 2010Q4

REPORT INFORMATION
  Report Type: 
  Country: None (occurrence: None)
  Receive Date: 20101130
  Receipt Date: 20090805
  Transmission Date: 20110411
  Serious: Yes (Hospitalization)
  Sender: FDA-Public Use
  Company Number: 2008-177914-NL

PATIENT
  Age: 30 Year
  Sex: Female
  Weight: 81.6 kg

DRUGS (12)
  1. NUVARING [Suspect]
     Indication: CONTRACEPTION
     Dosage: Q3W;VAG
     Route: 067
     Dates: start: 20030806, end: 20050726
  2. DEPO-PROVERA [Suspect]
     Indication: PRODUCT USED FOR UNKNOWN INDICATION
     Dates: start: 19980101, end: 20080101
  3. ALLEGRA D 24 HOUR [Concomitant]
  4. BIAXIN XL [Concomitant]
  5. AUGMENTIN '125' [Concomitant]
  6. MACROBID [Concomitant]
  7. OLUX [Concomitant]
  8. ACIPHEX [Concomitant]
  9. TEQUIN [Concomitant]
  10. CEFZIL [Concomitant]
  11. FLEXERIL [Concomitant]
  12. MOTRIN [Concomitant]

REACTIONS (11)
  - BACK PAIN [None]
  - BREAST CYST [None]
  - DEEP VEIN THROMBOSIS [None]
  - GASTROOESOPHAGEAL REFLUX DISEASE [None]
  - HIDRADENITIS [None]
  - HYPERTENSION [None]
  - HYPOKALAEMIA [None]
  - PHARYNGITIS [None]
  - POLLAKIURIA [None]
  - SINUSITIS [None]
  - URINARY TRACT INFECTION [None]
